FAERS Safety Report 25331224 (Version 1)
Quarter: 2025Q2

REPORT INFORMATION
  Report Type: Spontaneous
  Country: US (occurrence: None)
  Receive Date: 20250519
  Receipt Date: 20250519
  Transmission Date: 20250717
  Serious: Yes (Hospitalization)
  Sender: FDA-CTU
  Company Number: None

PATIENT
  Sex: Female

DRUGS (11)
  1. LENALIDOMIDE [Suspect]
     Active Substance: LENALIDOMIDE
     Indication: Plasma cell myeloma
     Dates: start: 20240112
  2. ASPIRIN CHW [Concomitant]
  3. BORTEZOMIB [Concomitant]
     Active Substance: BORTEZOMIB
  4. BORTEZOMIB [Concomitant]
     Active Substance: BORTEZOMIB
  5. BUTALBITAL AND ACETAMINOPHEN [Concomitant]
     Active Substance: ACETAMINOPHEN\BUTALBITAL
  6. CAL TRATE 600 CHW +D PLUS [Concomitant]
  7. DARZALEX SOL [Concomitant]
  8. DARZALEX SOL [Concomitant]
  9. DEXAMETHASONE PHOSPHATE [Concomitant]
     Active Substance: DEXAMETHASONE PHOSPHATE
  10. DEXAMETHASONE [Concomitant]
     Active Substance: DEXAMETHASONE
  11. DIFICID TAB [Concomitant]

REACTIONS (4)
  - Viral infection [None]
  - Nasopharyngitis [None]
  - Constipation [None]
  - Diarrhoea [None]
